FAERS Safety Report 6167943-2 (Version None)
Quarter: 2009Q2

REPORT INFORMATION
  Report Type: 
  Country: None (occurrence: None)
  Receive Date: 20090424
  Receipt Date: 20090424
  Transmission Date: 20091009
  Serious: Yes (Other)
  Sender: FDA-Public Use
  Company Number: None

PATIENT
  Age: 59 Year
  Sex: Male

DRUGS (1)
  1. WELLBUTRIN XL [Suspect]
     Indication: MAJOR DEPRESSION
     Dosage: 300 MG DAILY ORAL
     Dates: start: 20060105

REACTIONS (4)
  - ASTHENIA [None]
  - DEPRESSION [None]
  - PAIN [None]
  - PRODUCT SUBSTITUTION ISSUE [None]
